FAERS Safety Report 9174647 (Version 2)
Quarter: 2013Q3

REPORT INFORMATION
  Report Type: Spontaneous
  Country: FR (occurrence: FR)
  Receive Date: 20130320
  Receipt Date: 20130730
  Transmission Date: 20140515
  Serious: Yes (Other)
  Sender: FDA-Public Use
  Company Number: FR-ASTRAZENECA-2013SE16339

PATIENT
  Age: 27790 Day
  Sex: Male

DRUGS (4)
  1. CRESTOR [Suspect]
     Indication: HYPERCHOLESTEROLAEMIA
     Route: 048
     Dates: start: 20130111, end: 20130123
  2. CARBOSYMAG [Concomitant]
     Dates: end: 20130123
  3. DAFLON [Concomitant]
     Dates: end: 20130123
  4. FLECTOR [Concomitant]
     Route: 048
     Dates: end: 20130123

REACTIONS (1)
  - Diplopia [Unknown]
